FAERS Safety Report 9230323 (Version 2)
Quarter: 2013Q2

REPORT INFORMATION
  Report Type: Spontaneous
  Country: US (occurrence: US)
  Receive Date: 20130415
  Receipt Date: 20130613
  Transmission Date: 20140414
  Serious: Yes (Other)
  Sender: FDA-Public Use
  Company Number: PHEH2013US008290

PATIENT
  Age: 32 Year
  Sex: Female

DRUGS (1)
  1. RITALIN [Suspect]
     Dosage: UNK

REACTIONS (1)
  - Suicidal ideation [Unknown]
